FAERS Safety Report 8136773-4 (Version None)
Quarter: 2012Q1

REPORT INFORMATION
  Report Type: 
  Country: None (occurrence: None)
  Receive Date: 20120214
  Receipt Date: 20120208
  Transmission Date: 20120608
  Serious: Yes (Hospitalization, Other)
  Sender: FDA-Public Use
  Company Number: DE-PFIZER INC-2011311212

PATIENT
  Age: 47 Year
  Sex: Male
  Weight: 86 kg

DRUGS (6)
  1. IRINOTECAN HCL [Suspect]
     Indication: COLORECTAL CANCER METASTATIC
     Dosage: 360 MG, WEEKLY
     Route: 042
     Dates: start: 20110719, end: 20111214
  2. INDOMETHACIN [Concomitant]
     Dosage: 50 MG, AS NEEDED
     Route: 048
     Dates: start: 20111022, end: 20111222
  3. FLUOROURACIL [Suspect]
     Indication: COLORECTAL CANCER METASTATIC
     Dosage: 800/4800 MG EVERY OTHER WEEK
     Route: 042
     Dates: start: 20110719, end: 20111214
  4. CETUXIMAB [Suspect]
     Indication: COLORECTAL CANCER METASTATIC
     Dosage: 800/500 MG WEEKLY
     Route: 042
     Dates: start: 20110719, end: 20111214
  5. NOVALGIN [Concomitant]
     Dosage: 20 GTT, AS NEEDED
     Route: 048
     Dates: start: 20111206, end: 20111221
  6. LEUCOVORIN CALCIUM [Suspect]
     Indication: COLORECTAL CANCER METASTATIC
     Dosage: 800 MG, EVERY OTHER WEEK
     Dates: start: 20110719, end: 20111214

REACTIONS (3)
  - HEADACHE [None]
  - GASTRITIS EROSIVE [None]
  - VISUAL ACUITY REDUCED [None]
